FAERS Safety Report 5321045-3 (Version None)
Quarter: 2007Q2

REPORT INFORMATION
  Report Type: 
  Country: None (occurrence: None)
  Receive Date: 20070507
  Receipt Date: 20070507
  Transmission Date: 20071010
  Serious: Yes (Death)
  Sender: FDA-Public Use
  Company Number: None

PATIENT
  Sex: Male

DRUGS (2)
  1. PACLITAXEL [Suspect]
     Indication: LUNG NEOPLASM MALIGNANT
     Dosage: SEE IMAGE
     Route: 042
     Dates: start: 20070108, end: 20070419
  2. CARBOPLATIN [Suspect]
     Indication: LUNG NEOPLASM MALIGNANT
     Dosage: SEE IMAGE
     Route: 042
     Dates: start: 20070108, end: 20070419

REACTIONS (11)
  - BLOOD CREATININE INCREASED [None]
  - BLOOD POTASSIUM DECREASED [None]
  - BRAIN NATRIURETIC PEPTIDE INCREASED [None]
  - DYSPNOEA [None]
  - FIBRIN D DIMER INCREASED [None]
  - HEART RATE INCREASED [None]
  - HYPERGLYCAEMIA [None]
  - HYPOTENSION [None]
  - HYPOXIA [None]
  - METABOLIC ACIDOSIS [None]
  - MYOGLOBIN BLOOD INCREASED [None]
